FAERS Safety Report 5427623-5 (Version None)
Quarter: 2007Q3

REPORT INFORMATION
  Report Type: 
  Country: None (occurrence: None)
  Receive Date: 20070823
  Receipt Date: 20070808
  Transmission Date: 20080115
  Serious: Yes (Hospitalization)
  Sender: FDA-Public Use
  Company Number: DSA_30431_2007

PATIENT
  Sex: Female

DRUGS (4)
  1. LORAZEPAM [Suspect]
     Dosage: (1 MG 1X ORAL)
     Route: 048
     Dates: start: 20070808, end: 20070808
  2. GLIANIMON (GLIANIMON - BENPERIDOL) [Suspect]
     Dosage: (0.5 MG 1X ORAL)
     Route: 048
     Dates: start: 20070808, end: 20070808
  3. SEROQUEL [Suspect]
     Dosage: (75 MG 1X ORAL)
     Route: 048
     Dates: start: 20070808, end: 20070808
  4. SPASMEX (SPASMEX - TROSPIUM CHLORIDE) 0.5 MG [Suspect]
     Dosage: 15 MG 1X ORAL)
     Route: 048
     Dates: start: 20070808, end: 20070808

REACTIONS (2)
  - ACCIDENTAL OVERDOSE [None]
  - MEDICATION ERROR [None]
